FAERS Safety Report 20409621 (Version 3)
Quarter: 2022Q1

REPORT INFORMATION
  Report Type: Spontaneous
  Country: JP (occurrence: JP)
  Receive Date: 20220201
  Receipt Date: 20220323
  Transmission Date: 20220424
  Serious: No
  Sender: FDA-Public Use
  Company Number: JP-GLAXOSMITHKLINE-JP2022JPN013407

PATIENT
  Sex: Female
  Weight: 108 kg

DRUGS (8)
  1. SOTROVIMAB [Suspect]
     Active Substance: SOTROVIMAB
     Indication: COVID-19
     Dosage: 500 MG/100 ML/30 MINUTES
     Route: 042
     Dates: start: 20220123, end: 20220123
  2. MONTELUKAST [Suspect]
     Active Substance: MONTELUKAST SODIUM
     Indication: COVID-19
     Dosage: 10 MG PER DAY
     Route: 048
     Dates: start: 20220122, end: 20220124
  3. VIDARABINE [Suspect]
     Active Substance: VIDARABINE
     Indication: Oral herpes
     Dosage: 5 G
     Route: 003
     Dates: start: 20211119
  4. HERBALS [Suspect]
     Active Substance: HERBALS
     Indication: Oedema
     Dosage: 6 G PER DAY
     Route: 048
     Dates: start: 20211203, end: 20220121
  5. CEFDITOREN PIVOXIL [Suspect]
     Active Substance: CEFDITOREN PIVOXIL
     Indication: Nasopharyngitis
     Dosage: 300 MG PER DAY
     Route: 048
  6. AZITHROMYCIN [Suspect]
     Active Substance: AZITHROMYCIN
     Indication: COVID-19
     Dosage: 500 MG
     Route: 048
     Dates: start: 20220122, end: 20220124
  7. DEXTROMETHORPHAN HYDROBROMIDE [Suspect]
     Active Substance: DEXTROMETHORPHAN HYDROBROMIDE
     Indication: COVID-19
     Dosage: 45 MG PER DAY
     Route: 048
     Dates: start: 20220122, end: 20220124
  8. CLENBUTEROL [Suspect]
     Active Substance: CLENBUTEROL
     Indication: COVID-19
     Dosage: 30 UG PER DAY
     Route: 048
     Dates: start: 20220122, end: 20220124

REACTIONS (1)
  - Exposure during pregnancy [Unknown]
